FAERS Safety Report 16242886 (Version 1)
Quarter: 2019Q2

REPORT INFORMATION
  Report Type: Report from Study
  Country: US (occurrence: US)
  Receive Date: 20190426
  Receipt Date: 20190426
  Transmission Date: 20190711
  Serious: Yes (Other)
  Sender: FDA-Public Use
  Company Number: US-UCBSA-2019015848

PATIENT
  Age: 1 Year
  Sex: Male
  Weight: 3.96 kg

DRUGS (39)
  1. CERTOLIZUMAB PEGOL [Suspect]
     Active Substance: CERTOLIZUMAB PEGOL
     Indication: RHEUMATOID ARTHRITIS
     Dosage: 200 MILLIGRAM, 2X/MONTH
     Route: 064
     Dates: start: 20130701, end: 20150612
  2. CERTOLIZUMAB PEGOL [Suspect]
     Active Substance: CERTOLIZUMAB PEGOL
     Dosage: 200 MILLIGRAM
     Route: 064
     Dates: start: 20151215, end: 20151215
  3. CERTOLIZUMAB PEGOL [Suspect]
     Active Substance: CERTOLIZUMAB PEGOL
     Dosage: 200 MILLIGRAM
     Route: 064
     Dates: start: 20160215, end: 20160215
  4. CAFFEINE. [Concomitant]
     Active Substance: CAFFEINE
     Dosage: 1 SERVING ONCE A DAY
     Route: 064
     Dates: start: 20150612, end: 20150802
  5. EMERGEN C [Concomitant]
     Active Substance: MINERALS\VITAMINS
     Indication: NASOPHARYNGITIS
     Dosage: 1 DOSAGE FORM, ONCE DAILY (QD)
     Route: 064
     Dates: start: 20151218, end: 20160125
  6. GAS-X [Concomitant]
     Active Substance: DIMETHICONE
     Indication: ABDOMINAL DISTENSION
     Dosage: 125 MILLIGRAM, ONCE DAILY (QD)
     Route: 064
     Dates: start: 20151223, end: 20151223
  7. TUMS [Concomitant]
     Active Substance: CALCIUM CARBONATE
     Dosage: 2 DOSAGE FORM, PRN
     Route: 064
     Dates: start: 20151020, end: 20160316
  8. CAFFEINE. [Concomitant]
     Active Substance: CAFFEINE
     Dosage: 1 SERVING ONCE A DAY
     Route: 064
     Dates: start: 20151026, end: 20151026
  9. JUICE PLUS [Concomitant]
     Active Substance: DIETARY SUPPLEMENT
     Indication: PRODUCT USED FOR UNKNOWN INDICATION
     Dosage: 1 DOSAGE FORM, ONCE DAILY (QD)
     Route: 064
     Dates: start: 20151109, end: 20160316
  10. TYLENOL [Concomitant]
     Active Substance: ACETAMINOPHEN
     Indication: ARTHRALGIA
     Dosage: 2 UNK, 2X/DAY (BID)
     Route: 064
     Dates: start: 20150805, end: 20150805
  11. CAFFEINE. [Concomitant]
     Active Substance: CAFFEINE
     Dosage: 1 SERVING ONCE A DAY
     Route: 064
     Dates: start: 20151208, end: 20151208
  12. DIPHENHYDRAMINE HCL [Concomitant]
     Active Substance: DIPHENHYDRAMINE HYDROCHLORIDE
     Indication: RASH
     Dosage: 50 MILLIGRAM, PRN
     Route: 064
     Dates: start: 20151116, end: 20160315
  13. FLAXSEED [Concomitant]
     Active Substance: FLAX SEED
     Indication: PRODUCT USED FOR UNKNOWN INDICATION
     Dosage: 1000 MILLIGRAM, ONCE DAILY (QD)
     Route: 064
     Dates: start: 20150612, end: 20160316
  14. CERTOLIZUMAB PEGOL [Suspect]
     Active Substance: CERTOLIZUMAB PEGOL
     Dosage: 200 MILLIGRAM
     Route: 064
     Dates: start: 20150923, end: 20150923
  15. PREDNISONE. [Concomitant]
     Active Substance: PREDNISONE
     Indication: RHEUMATOID ARTHRITIS
     Dosage: 5 MILLIGRAM, 2X/DAY (BID)
     Route: 064
  16. TUMS [Concomitant]
     Active Substance: CALCIUM CARBONATE
     Indication: DYSPEPSIA
     Dosage: 2 DOSAGE FORM, ONCE DAILY (QD)
     Route: 064
     Dates: start: 20150917, end: 20150917
  17. VITAMIN C [Concomitant]
     Active Substance: ASCORBIC ACID
     Indication: PROPHYLAXIS
     Dosage: UNK
     Route: 064
  18. VITAMIN D3 [Concomitant]
     Active Substance: CHOLECALCIFEROL
     Indication: PRODUCT USED FOR UNKNOWN INDICATION
     Dosage: 1250 INTERNATIONAL UNIT, ONCE DAILY (QD)
     Route: 064
     Dates: start: 20150612, end: 20160316
  19. CERTOLIZUMAB PEGOL [Suspect]
     Active Substance: CERTOLIZUMAB PEGOL
     Dosage: 200 MILLIGRAM
     Route: 064
     Dates: start: 20150816, end: 20150816
  20. CERTOLIZUMAB PEGOL [Suspect]
     Active Substance: CERTOLIZUMAB PEGOL
     Dosage: 200 MILLIGRAM
     Route: 064
     Dates: start: 20151009, end: 20151009
  21. CALCIUM CITRATE [Concomitant]
     Active Substance: CALCIUM CITRATE
     Indication: PRODUCT USED FOR UNKNOWN INDICATION
     Dosage: 315 MILLIGRAM
     Route: 064
     Dates: start: 20150612, end: 20160316
  22. GAS-X [Concomitant]
     Active Substance: DIMETHICONE
     Indication: FLATULENCE
     Dosage: 125 MILLIGRAM, ONCE DAILY (QD)
     Route: 064
     Dates: start: 20160216, end: 20160216
  23. GAS-X [Concomitant]
     Active Substance: DIMETHICONE
     Dosage: 125 MILLIGRAM, ONCE DAILY (QD)
     Route: 064
     Dates: start: 20160304, end: 20160304
  24. TUMS [Concomitant]
     Active Substance: CALCIUM CARBONATE
     Dosage: 2 DOSAGE FORM, ONCE DAILY (QD)
     Route: 064
     Dates: start: 20150924, end: 20150924
  25. CERTOLIZUMAB PEGOL [Suspect]
     Active Substance: CERTOLIZUMAB PEGOL
     Dosage: 200 MILLIGRAM
     Route: 064
     Dates: start: 20150618, end: 20150618
  26. CERTOLIZUMAB PEGOL [Suspect]
     Active Substance: CERTOLIZUMAB PEGOL
     Dosage: 200 MILLIGRAM
     Route: 064
     Dates: start: 20150712, end: 20150712
  27. BENADRYL [Concomitant]
     Active Substance: DIPHENHYDRAMINE HYDROCHLORIDE
     Indication: NASOPHARYNGITIS
     Dosage: 2 PILLS AS REQUIRED
     Route: 064
     Dates: start: 20151226, end: 20160125
  28. CAFFEINE. [Concomitant]
     Active Substance: CAFFEINE
     Dosage: 0.42 SERVING ONCE A DAY
     Route: 064
     Dates: start: 20151011, end: 20151017
  29. CAFFEINE. [Concomitant]
     Active Substance: CAFFEINE
     Dosage: 1 SERVING ONCE A DAY
     Route: 064
     Dates: start: 20151126, end: 20151126
  30. CAFFEINE. [Concomitant]
     Active Substance: CAFFEINE
     Dosage: 0.33 SERVING ONCE A DAY
     Route: 064
     Dates: start: 20151231, end: 20151231
  31. FLULAVAL [Concomitant]
     Indication: PRODUCT USED FOR UNKNOWN INDICATION
     Dosage: 1 DOSAGE FORM, ONCE DAILY (QD)
     Route: 064
     Dates: start: 20151217, end: 20151217
  32. CERTOLIZUMAB PEGOL [Suspect]
     Active Substance: CERTOLIZUMAB PEGOL
     Dosage: 200 MILLIGRAM
     Route: 064
     Dates: start: 20160304, end: 20160304
  33. BIOFLAVONOID [Concomitant]
     Active Substance: BIOFLAVONOIDS
     Indication: PRODUCT USED FOR UNKNOWN INDICATION
     Dosage: 700 MILLIGRAM, ONCE DAILY (QD)
     Route: 064
     Dates: start: 20150612
  34. BUDESONIDE. [Concomitant]
     Active Substance: BUDESONIDE
     Indication: HYPERSENSITIVITY
     Dosage: 64 MICROGRAM, ONCE DAILY (QD)
     Route: 064
     Dates: start: 20150615, end: 20160316
  35. TDAP [Concomitant]
     Active Substance: TETANUS TOXOID, REDUCED DIPHTHERIA TOXOID AND ACELLULAR PERTUSSIS VACCINE ADSORBED, TDAP
     Indication: PRODUCT USED FOR UNKNOWN INDICATION
     Dosage: 1 DOSAGE FORM
     Route: 064
     Dates: start: 20160215, end: 20160215
  36. CERTOLIZUMAB PEGOL [Suspect]
     Active Substance: CERTOLIZUMAB PEGOL
     Dosage: 200 MILLIGRAM
     Route: 064
     Dates: start: 20160125, end: 20160125
  37. PRENATAL VITAMINS [Concomitant]
     Active Substance: VITAMINS
     Indication: PRODUCT USED FOR UNKNOWN INDICATION
     Dosage: UNK
     Route: 064
     Dates: start: 201404
  38. PRENATAL VITAMINS [Concomitant]
     Active Substance: VITAMINS
     Dosage: 1 DOSAGE FORM, ONCE DAILY (QD)
     Route: 064
     Dates: start: 20150612, end: 20160316
  39. PROBIOTICS NOS [Concomitant]
     Active Substance: PROBIOTICS NOS
     Indication: PRODUCT USED FOR UNKNOWN INDICATION
     Dosage: 1 DOSAGE FORM, ONCE DAILY (QD)
     Route: 064
     Dates: start: 20150612, end: 20160316

REACTIONS (2)
  - Language disorder [Unknown]
  - Maternal exposure during pregnancy [Unknown]

NARRATIVE: CASE EVENT DATE: 20150628
